FAERS Safety Report 5124466-7 (Version None)
Quarter: 2006Q4

REPORT INFORMATION
  Report Type: 
  Country: None (occurrence: None)
  Receive Date: 20061006
  Receipt Date: 20061002
  Transmission Date: 20070319
  Serious: Yes (Other)
  Sender: FDA-Public Use
  Company Number: B0440983A

PATIENT
  Age: 65 Year
  Sex: Female
  Weight: 64.8644 kg

DRUGS (1)
  1. AUGMENTIN '250' [Suspect]
     Indication: PYELONEPHRITIS
     Dates: start: 20060918

REACTIONS (2)
  - MAJOR DEPRESSION [None]
  - VULVOVAGINAL MYCOTIC INFECTION [None]
